FAERS Safety Report 7504785-7 (Version None)
Quarter: 2011Q2

REPORT INFORMATION
  Report Type: 
  Country: None (occurrence: None)
  Receive Date: 20110525
  Receipt Date: 20101202
  Transmission Date: 20111010
  Serious: No
  Sender: FDA-Public Use
  Company Number: US-AMGEN-USASP2011002195

PATIENT

DRUGS (1)
  1. ARANESP [Suspect]

REACTIONS (2)
  - INJURY ASSOCIATED WITH DEVICE [None]
  - MEDICAL DEVICE COMPLICATION [None]
